FAERS Safety Report 14914033 (Version 2)
Quarter: 2018Q2

REPORT INFORMATION
  Report Type: Report from Study
  Country: CA (occurrence: CA)
  Receive Date: 20180518
  Receipt Date: 20180629
  Transmission Date: 20180711
  Serious: Yes (Other)
  Sender: FDA-Public Use
  Company Number: CA-JNJFOC-20180520302

PATIENT
  Age: 17 Year
  Sex: Male
  Weight: 77 kg

DRUGS (1)
  1. REMICADE [Suspect]
     Active Substance: INFLIXIMAB
     Indication: CROHN^S DISEASE
     Dosage: STRENGTH = 100 MG, 10 MG/KG
     Route: 042
     Dates: start: 20160708

REACTIONS (5)
  - Abdominal pain [Recovered/Resolved]
  - Product use issue [Unknown]
  - Haematochezia [Recovered/Resolved]
  - Polyp [Recovering/Resolving]
  - Off label use [Unknown]

NARRATIVE: CASE EVENT DATE: 20160708
